FAERS Safety Report 4788340-8 (Version None)
Quarter: 2005Q4

REPORT INFORMATION
  Report Type: 
  Country: None (occurrence: None)
  Receive Date: 20051003
  Receipt Date: 20050923
  Transmission Date: 20060501
  Serious: Yes (Hospitalization)
  Sender: FDA-Public Use
  Company Number: KII-2005-0018767

PATIENT
  Age: 50 Year
  Sex: Female

DRUGS (6)
  1. MORPHINE SULFATE [Suspect]
     Dosage: ORAL
     Route: 048
  2. ACETAMINOPHEN AND HYDROCODONE BITARTRATE [Suspect]
     Dosage: ORAL
     Route: 048
  3. ANTIPSYCHOTICS [Suspect]
     Dosage: ORAL
     Route: 048
  4. ANTIDEPRESSANTS [Suspect]
     Dosage: ORAL
     Route: 048
  5. ^SLEEPING PILL^ [Suspect]
     Dosage: ORAL
     Route: 048
  6. ETHANOL (ETHANOL) [Suspect]

REACTIONS (6)
  - BLOOD PRESSURE DECREASED [None]
  - MIOSIS [None]
  - MULTIPLE DRUG OVERDOSE [None]
  - OXYGEN SATURATION DECREASED [None]
  - SINUS TACHYCARDIA [None]
  - SOMNOLENCE [None]
